FAERS Safety Report 5353970-1 (Version None)
Quarter: 2007Q2

REPORT INFORMATION
  Report Type: 
  Country: None (occurrence: None)
  Receive Date: 20070612
  Receipt Date: 20070531
  Transmission Date: 20071010
  Serious: Yes (Other)
  Sender: FDA-Public Use
  Company Number: US-ASTRAZENECA-2006UW07423

PATIENT
  Age: 564 Month
  Sex: Female
  Weight: 71.8 kg

DRUGS (3)
  1. SEROQUEL [Suspect]
     Indication: SLEEP DISORDER
     Dosage: 100MG - 200MG 2-3X DAILY
     Route: 048
     Dates: start: 20040101, end: 20060101
  2. GLUCOPHAGE [Concomitant]
  3. INSULIN [Concomitant]

REACTIONS (2)
  - DIABETES MELLITUS [None]
  - PANCREATITIS [None]
